FAERS Safety Report 8958989 (Version 1)
Quarter: 2012Q4

REPORT INFORMATION
  Report Type: 
  Country: GB (occurrence: GB)
  Receive Date: 20121211
  Receipt Date: 20121211
  Transmission Date: 20130627
  Serious: Yes (Hospitalization)
  Sender: FDA-Public Use
  Company Number: GB-PFIZER INC-2008009211JJ

PATIENT
  Age: 81 Year
  Sex: Female

DRUGS (5)
  1. IBUPROFEN [Suspect]
     Indication: PAIN
     Dosage: 400 mg, 3x/day
     Route: 048
     Dates: start: 20010101, end: 20011205
  2. PAROXETINE [Concomitant]
     Dosage: 20 MG
     Route: 048
  3. FRUSEMIDE [Concomitant]
     Dosage: 120 MG
     Route: 048
  4. RISPERIDONE [Concomitant]
     Dosage: 5 MG
     Route: 048
  5. LANSOPRAZOLE [Concomitant]
     Dosage: 30 MG
     Route: 048

REACTIONS (3)
  - Iron deficiency anaemia [Recovered/Resolved]
  - Gastritis [Unknown]
  - Duodenitis [Unknown]
